FAERS Safety Report 15744981 (Version 1)
Quarter: 2018Q4

REPORT INFORMATION
  Report Type: Spontaneous
  Country: US (occurrence: US)
  Receive Date: 20181220
  Receipt Date: 20181220
  Transmission Date: 20190205
  Serious: No
  Sender: FDA-Public Use
  Company Number: None

PATIENT
  Age: 12 Year
  Sex: Female
  Weight: 49.5 kg

DRUGS (3)
  1. LEVETIRACETAM 100MG SOLUTION [Suspect]
     Active Substance: LEVETIRACETAM
     Indication: SEIZURE
     Dosage: ?          QUANTITY:1 TEASPOON(S);?
     Route: 048
     Dates: start: 20181109
  2. MULIT-VITAMIN WITH IRON [Concomitant]
  3. B6 [Concomitant]
     Active Substance: PYRIDOXINE HYDROCHLORIDE

REACTIONS (6)
  - Fatigue [None]
  - Dyskinesia [None]
  - Abnormal behaviour [None]
  - Seizure [None]
  - Dizziness [None]
  - Quality of life decreased [None]

NARRATIVE: CASE EVENT DATE: 20181207
